FAERS Safety Report 5446578-0 (Version None)
Quarter: 2007Q3

REPORT INFORMATION
  Report Type: 
  Country: None (occurrence: None)
  Receive Date: 20070907
  Receipt Date: 20070831
  Transmission Date: 20080115
  Serious: Yes (Other)
  Sender: FDA-Public Use
  Company Number: HQWYE076206AUG04

PATIENT

DRUGS (2)
  1. PREMARIN [Suspect]
  2. PREMPRO [Suspect]

REACTIONS (1)
  - BREAST CANCER METASTATIC [None]
